FAERS Safety Report 13493590 (Version 1)
Quarter: 2017Q2

REPORT INFORMATION
  Report Type: Spontaneous
  Country: US (occurrence: US)
  Receive Date: 20170427
  Receipt Date: 20170427
  Transmission Date: 20170830
  Serious: No
  Sender: FDA-Public Use
  Company Number: US-ROCHE-1410361

PATIENT
  Sex: Male

DRUGS (3)
  1. ERIVEDGE [Suspect]
     Active Substance: VISMODEGIB
     Indication: SKIN CANCER
     Route: 048
     Dates: start: 20140206
  2. LIPITOR [Concomitant]
     Active Substance: ATORVASTATIN CALCIUM
  3. CELEBREX [Concomitant]
     Active Substance: CELECOXIB

REACTIONS (5)
  - Ageusia [Unknown]
  - Dysgeusia [Unknown]
  - Brain neoplasm [Unknown]
  - Nausea [Unknown]
  - Muscle spasms [Unknown]
